FAERS Safety Report 9331435 (Version 2)
Quarter: 2013Q4

REPORT INFORMATION
  Report Type: Report from Study
  Country: CA (occurrence: CA)
  Receive Date: 20130605
  Receipt Date: 20131016
  Transmission Date: 20140711
  Serious: Yes (Other)
  Sender: FDA-Public Use
  Company Number: CA-ELI_LILLY_AND_COMPANY-CA201305008392

PATIENT
  Age: 65 Year
  Sex: Female

DRUGS (9)
  1. TERIPARATIDE [Suspect]
     Indication: OSTEOPOROSIS
     Dosage: 20MCG, OD
     Route: 058
     Dates: end: 20130705
  2. RAMIPRIL [Concomitant]
  3. CLOPIDOGREL MYLAN [Concomitant]
  4. ATORVASTATIN [Concomitant]
  5. ASA [Concomitant]
     Dosage: 81MG, UNK
  6. VITAMIN D [Concomitant]
  7. VERAPAMIL [Concomitant]
  8. ADVAIR [Concomitant]
  9. ATROVENT [Concomitant]

REACTIONS (3)
  - Breast cancer female [Not Recovered/Not Resolved]
  - Breast mass [Not Recovered/Not Resolved]
  - Breast cyst [Unknown]
